FAERS Safety Report 8134546-X (Version None)
Quarter: 2012Q1

REPORT INFORMATION
  Report Type: 
  Country: None (occurrence: None)
  Receive Date: 20120214
  Receipt Date: 20120209
  Transmission Date: 20120608
  Serious: Yes (Life-Threatening, Hospitalization)
  Sender: FDA-Public Use
  Company Number: US-BAYER-2011-067578

PATIENT
  Age: 15 Year
  Sex: Female
  Weight: 64 kg

DRUGS (8)
  1. AMOXICILLIN [Concomitant]
     Indication: ANTIBIOTIC THERAPY
  2. METRONIDAZOLE [Concomitant]
     Indication: ANTIBIOTIC THERAPY
  3. PERCOCET [Concomitant]
  4. YAZ [Suspect]
     Indication: CONTRACEPTION
     Dosage: UNK
     Dates: start: 20081120, end: 20081220
  5. DROSPIRENONE AND ETHINYL ESTRADIOL [Suspect]
     Indication: CONTRACEPTION
     Dosage: UNK
     Dates: start: 20081230, end: 20091218
  6. ZOLOFT [Concomitant]
     Indication: ANXIETY
     Dosage: UNK
     Dates: start: 20020101
  7. GABAPENTIN [Concomitant]
     Indication: MOOD ALTERED
     Dosage: UNK
     Dates: start: 20060101
  8. OXYCODONE HCL AND ACETAMINOPHEN [Concomitant]
     Indication: PAIN

REACTIONS (6)
  - ANHEDONIA [None]
  - INJURY [None]
  - PAIN [None]
  - APPENDICITIS [None]
  - ANXIETY [None]
  - DEEP VEIN THROMBOSIS [None]
